FAERS Safety Report 23762757 (Version 2)
Quarter: 2024Q2

REPORT INFORMATION
  Report Type: Report from Study
  Country: CO (occurrence: CO)
  Receive Date: 20240419
  Receipt Date: 20240514
  Transmission Date: 20240716
  Serious: Yes (Other)
  Sender: FDA-Public Use
  Company Number: CO-002147023-NVSC2024CO083075

PATIENT
  Age: 60 Year
  Sex: Female
  Weight: 65 kg

DRUGS (2)
  1. TASIGNA [Suspect]
     Active Substance: NILOTINIB
     Indication: Chronic myeloid leukaemia
     Dosage: 400 MG, Q12H
     Route: 048
     Dates: start: 20150101
  2. TASIGNA [Suspect]
     Active Substance: NILOTINIB
     Dosage: 200 MG, Q12H (BID)
     Route: 048

REACTIONS (14)
  - Facial paralysis [Unknown]
  - Tongue disorder [Unknown]
  - Toxicity to various agents [Unknown]
  - Erythema [Unknown]
  - Pain in jaw [Unknown]
  - Headache [Unknown]
  - Gastroenteritis [Unknown]
  - Herpes virus infection [Unknown]
  - Pain [Unknown]
  - Ear pain [Unknown]
  - Insomnia [Unknown]
  - Neck pain [Unknown]
  - Arthralgia [Unknown]
  - Incorrect dose administered [Unknown]

NARRATIVE: CASE EVENT DATE: 20240329
